FAERS Safety Report 9458850 (Version 1)
Quarter: 2013Q3

REPORT INFORMATION
  Report Type: Spontaneous
  Country: BR (occurrence: BR)
  Receive Date: 20130814
  Receipt Date: 20130814
  Transmission Date: 20140515
  Serious: Yes (Life-Threatening, Hospitalization, Other)
  Sender: FDA-Public Use
  Company Number: PHHY2013BR086517

PATIENT
  Age: 83 Year
  Sex: Female

DRUGS (11)
  1. FORASEQ [Suspect]
     Indication: EMPHYSEMA
     Dosage: BOTH TREATMENTS EVERY 12 HOURS
  2. TRAVATAN [Suspect]
     Indication: GLAUCOMA
     Dosage: 1 DRP IN EACH EYE, ONCE PER DAY
  3. AZOPT [Suspect]
     Indication: GLAUCOMA
     Dosage: 1 DRP IN EACH EYE, EVERY 12 HOURS
  4. BRIMONIDINE [Suspect]
     Indication: GLAUCOMA
     Dosage: 1 DRP IN EACH EYE, EVERY 12 HOURS
  5. OMEPRAZOLE [Suspect]
     Indication: GASTRIC DISORDER
     Dosage: 2 DF, QD
     Route: 048
     Dates: start: 2009
  6. FUROSEMIDE [Suspect]
     Indication: DIURETIC THERAPY
     Dosage: 1 DF, QD
     Route: 048
     Dates: start: 2009
  7. AAS [Suspect]
     Indication: ANTICOAGULANT THERAPY
     Dosage: 2 DF, QD
     Route: 048
     Dates: start: 2009
  8. SUSTRATE [Suspect]
     Dosage: 1 DF, QD
     Route: 048
  9. BROMOPRIDE [Suspect]
     Indication: DYSPEPSIA
     Dosage: 1 DF,30 MINUTES BEFORE EACH MEAL
     Route: 048
     Dates: start: 2009
  10. BEROTEC [Suspect]
     Indication: EMPHYSEMA
     Dosage: 3 DRP, UNK
  11. ATROVENT [Suspect]
     Indication: EMPHYSEMA
     Dosage: UNK UKN, UNK

REACTIONS (5)
  - Respiratory arrest [Recovered/Resolved]
  - Pneumonia [Recovered/Resolved]
  - Cerebrovascular accident [Recovered/Resolved]
  - Nosocomial infection [Not Recovered/Not Resolved]
  - Dyspnoea [Not Recovered/Not Resolved]
